FAERS Safety Report 8363482-9 (Version None)
Quarter: 2012Q1

REPORT INFORMATION
  Report Type: 
  Country: None (occurrence: None)
  Receive Date: 20120323
  Receipt Date: 20110818
  Transmission Date: 20120608
  Serious: Yes (Hospitalization)
  Sender: FDA-Public Use
  Company Number: 163-21880-11052147

PATIENT
  Age: 65 Year
  Sex: Female

DRUGS (6)
  1. CELEXA [Concomitant]
  2. SYNTHROID [Concomitant]
  3. AMLODIPINE [Concomitant]
  4. ZOFRAN [Concomitant]
  5. GLUCOPHAGE [Concomitant]
  6. REVLIMID [Suspect]
     Indication: MULTIPLE MYELOMA
     Dosage: 25 MG, 1 IN 1 D, PO
     Route: 048
     Dates: start: 20110207, end: 20110302

REACTIONS (4)
  - HYPOTHYROIDISM [None]
  - FAILURE TO THRIVE [None]
  - CONFUSIONAL STATE [None]
  - URINARY TRACT INFECTION [None]
